FAERS Safety Report 8537576-9 (Version None)
Quarter: 2012Q3

REPORT INFORMATION
  Report Type: 
  Country: None (occurrence: None)
  Receive Date: 20120712
  Receipt Date: 20120629
  Transmission Date: 20120928
  Serious: Yes (Death)
  Sender: FDA-Public Use
  Company Number: JP-2012-15735

PATIENT

DRUGS (1)
  1. SAMSCA [Suspect]
     Dosage: 15 MG MILLIGRAM(S), DAILY DOSE, PARENTERAL
     Route: 051
     Dates: start: 20120628, end: 20120629

REACTIONS (1)
  - DEATH [None]
